FAERS Safety Report 5246163-X (Version None)
Quarter: 2007Q1

REPORT INFORMATION
  Report Type: 
  Country: None (occurrence: None)
  Receive Date: 20070220
  Receipt Date: 20061207
  Transmission Date: 20070707
  Serious: Yes (Life-Threatening)
  Sender: FDA-Public Use
  Company Number: DISJP-06-0622

PATIENT
  Age: 83 Year
  Sex: Male

DRUGS (5)
  1. DIPRIVAN [Suspect]
     Indication: SEDATION
     Dosage: INTRAVENOUS
     Route: 042
     Dates: start: 20060901, end: 20060922
  2. RISPERDAL [Suspect]
     Indication: DRUG USE FOR UNKNOWN INDICATION
     Dosage: 1 MG, ORAL
     Route: 048
     Dates: start: 20060913, end: 20060921
  3. CIPROXAN (CIPROFLOXACIN HYDROCHLORIDE) [Suspect]
     Indication: DRUG USE FOR UNKNOWN INDICATION
     Dosage: 600 MG, INTRAVENOUS
     Route: 042
     Dates: start: 20060911, end: 20060921
  4. LASIX [Suspect]
     Indication: DRUG USE FOR UNKNOWN INDICATION
     Dosage: 40 MG
     Dates: start: 20060915, end: 20060927
  5. FAMOTIDINE [Suspect]
     Indication: DRUG USE FOR UNKNOWN INDICATION
     Dosage: 400 MG
     Dates: start: 20060916, end: 20060927

REACTIONS (1)
  - TOXIC EPIDERMAL NECROLYSIS [None]
